FAERS Safety Report 6587944-X (Version None)
Quarter: 2010Q1

REPORT INFORMATION
  Report Type: 
  Country: None (occurrence: None)
  Receive Date: 20100217
  Receipt Date: 20100217
  Transmission Date: 20100710
  Serious: Yes (Hospitalization)
  Sender: FDA-Public Use
  Company Number: None

PATIENT
  Weight: 57.1532 kg

DRUGS (3)
  1. CISPLATIN [Suspect]
     Indication: BREAST CANCER
     Dosage: 20MG/M2
     Dates: start: 20091016
  2. TAXOL [Suspect]
     Indication: BREAST CANCER
     Dosage: 70MG/M2
     Dates: start: 20091016
  3. RAD001 [Suspect]
     Indication: BREAST CANCER
     Dosage: 5 MG DAILY
     Dates: start: 20091016

REACTIONS (3)
  - CELLULITIS [None]
  - TOOTH ABSCESS [None]
  - TOOTHACHE [None]
